FAERS Safety Report 5196705-8 (Version None)
Quarter: 2007Q1

REPORT INFORMATION
  Report Type: 
  Country: None (occurrence: None)
  Receive Date: 20070103
  Receipt Date: 20061222
  Transmission Date: 20070707
  Serious: Yes (Other)
  Sender: FDA-Public Use
  Company Number: PHNU2006DE04247

PATIENT
  Age: 59 Year
  Sex: Female

DRUGS (2)
  1. TERBINAFINE [Suspect]
     Indication: NAIL TINEA
     Dosage: 250 MG/DAY
     Route: 048
     Dates: start: 20051224, end: 20060105
  2. PRESOMEN [Concomitant]

REACTIONS (9)
  - ANXIETY [None]
  - ASTHENIA [None]
  - DEPRESSION [None]
  - FEELING ABNORMAL [None]
  - LIMB DISCOMFORT [None]
  - MENTAL IMPAIRMENT [None]
  - MOOD ALTERED [None]
  - ORAL DISCOMFORT [None]
  - SUICIDAL IDEATION [None]
